FAERS Safety Report 9157438 (Version 1)
Quarter: 2013Q1

REPORT INFORMATION
  Report Type: Spontaneous
  Country: GB (occurrence: None)
  Receive Date: 20130213
  Receipt Date: 20130213
  Transmission Date: 20140127
  Serious: Yes (Other)
  Sender: FDA-Public Use
  Company Number: FK201300438

PATIENT
  Age: 37 Year
  Sex: Male

DRUGS (3)
  1. IRINOTECAN (MANUFACTURER UNKNOWN) (IRINOTECAN) (IRINOTECAN) [Suspect]
  2. AVASTIN (BEVACIZUMAB) [Suspect]
  3. LOMUSTINE [Suspect]

REACTIONS (3)
  - Agitation [None]
  - Gait disturbance [None]
  - Incontinence [None]
